FAERS Safety Report 7524436-5 (Version None)
Quarter: 2011Q2

REPORT INFORMATION
  Report Type: 
  Country: None (occurrence: None)
  Receive Date: 20110606
  Receipt Date: 20110601
  Transmission Date: 20111010
  Serious: Yes (Death)
  Sender: FDA-Public Use
  Company Number: PHHY2011MX48062

PATIENT
  Age: 76 Year
  Sex: Female

DRUGS (3)
  1. EXFORGE [Suspect]
     Dosage: 2 DF, 160 MG VALS AND 5 MG AMLO
  2. RASILEZ HCT [Suspect]
     Indication: HYPERTENSION
     Dosage: 1 DF, 150 MG ALIS AND 12.5 MG HYDR
     Dates: start: 20110301
  3. EXFORGE [Suspect]
     Indication: HYPERTENSION
     Dosage: 1 DF, 160 MG VALS AND 5 MG AMLO

REACTIONS (1)
  - INFARCTION [None]
